FAERS Safety Report 4388682-4 (Version None)
Quarter: 2004Q2

REPORT INFORMATION
  Report Type: 
  Country: None (occurrence: None)
  Receive Date: 20040624
  Receipt Date: 20040611
  Transmission Date: 20050107
  Serious: Yes (Other)
  Sender: FDA-Public Use
  Company Number: 2004039248

PATIENT
  Sex: Male

DRUGS (1)
  1. NEURONTIN [Suspect]
     Indication: ILL-DEFINED DISORDER

REACTIONS (1)
  - RENAL IMPAIRMENT [None]
